FAERS Safety Report 10607397 (Version 2)
Quarter: 2014Q4

REPORT INFORMATION
  Report Type: Spontaneous
  Country: US (occurrence: US)
  Receive Date: 20141125
  Receipt Date: 20141223
  Transmission Date: 20150529
  Serious: Yes (Other)
  Sender: FDA-Public Use
  Company Number: US-SA-2014SA159829

PATIENT
  Age: 59 Year
  Sex: Male
  Weight: 85.72 kg

DRUGS (2)
  1. LANTUS SOLOSTAR [Suspect]
     Active Substance: INSULIN GLARGINE
     Indication: TYPE 1 DIABETES MELLITUS
     Dosage: DOSE:42 UNIT(S)
     Route: 065
     Dates: start: 2012
  2. SOLOSTAR [Concomitant]
     Active Substance: DEVICE
     Dates: start: 2012

REACTIONS (3)
  - Tremor [Unknown]
  - Pancreas transplant [Unknown]
  - Blood glucose decreased [Unknown]
